FAERS Safety Report 21097898 (Version 1)
Quarter: 2022Q3

REPORT INFORMATION
  Report Type: Spontaneous
  Country: US (occurrence: US)
  Receive Date: 20220719
  Receipt Date: 20220719
  Transmission Date: 20221026
  Serious: No
  Sender: FDA-Public Use
  Company Number: US-TAKEDA-2022TUS047746

PATIENT
  Sex: Male
  Weight: 70.295 kg

DRUGS (6)
  1. GAMMAGARD S/D [Suspect]
     Active Substance: HUMAN IMMUNOGLOBULIN G
     Indication: Pemphigoid
     Dosage: 110 GRAM, Q4WEEKS
     Route: 042
  2. GAMMAGARD S/D [Suspect]
     Active Substance: HUMAN IMMUNOGLOBULIN G
     Indication: Pemphigoid
     Dosage: 110 GRAM, Q4WEEKS
     Route: 042
  3. TYLENOL [Concomitant]
     Active Substance: ACETAMINOPHEN
  4. VITAMINS [Concomitant]
     Active Substance: VITAMINS
  5. MELATONIN [Concomitant]
     Active Substance: MELATONIN
  6. CARAFATE [Concomitant]
     Active Substance: SUCRALFATE

REACTIONS (3)
  - Product storage error [Unknown]
  - Off label use [Unknown]
  - No adverse event [Unknown]
